FAERS Safety Report 18559566 (Version 1)
Quarter: 2020Q4

REPORT INFORMATION
  Report Type: Spontaneous
  Country: US (occurrence: US)
  Receive Date: 20201128
  Receipt Date: 20201128
  Transmission Date: 20210114
  Serious: No
  Sender: FDA-Public Use
  Company Number: None

PATIENT
  Age: 57 Year
  Sex: Female
  Weight: 51.75 kg

DRUGS (7)
  1. PROLIA [Suspect]
     Active Substance: DENOSUMAB
     Indication: OSTEOPOROSIS
     Dosage: ?          OTHER FREQUENCY:EVERY 6 MONTHS;?
     Route: 030
     Dates: start: 20170714, end: 20180118
  2. TEGRETOL [Concomitant]
     Active Substance: CARBAMAZEPINE
  3. CALCIUM [Concomitant]
     Active Substance: CALCIUM
  4. DULOXITINE [Suspect]
     Active Substance: DULOXETINE
  5. FISH OIL [Concomitant]
     Active Substance: FISH OIL
  6. VITAMIN D3 [Concomitant]
     Active Substance: CHOLECALCIFEROL
  7. VITAMIN K2 [Concomitant]
     Active Substance: MENAQUINONE 6

REACTIONS (1)
  - Pain in jaw [None]

NARRATIVE: CASE EVENT DATE: 20170806
